FAERS Safety Report 14149502 (Version 1)
Quarter: 2017Q4

REPORT INFORMATION
  Report Type: Spontaneous
  Country: US (occurrence: US)
  Receive Date: 20171101
  Receipt Date: 20171101
  Transmission Date: 20180321
  Serious: Yes (Disabling)
  Sender: FDA-Public Use
  Company Number: None

PATIENT
  Age: 30 Year
  Sex: Male
  Weight: 99 kg

DRUGS (5)
  1. LITHIUM. [Concomitant]
     Active Substance: LITHIUM
  2. SEROQUEL [Concomitant]
     Active Substance: QUETIAPINE FUMARATE
  3. TRYPTOPHAN [Concomitant]
     Active Substance: TRYPTOPHAN
  4. MEGAFOOD MULTIVITAMIN [Concomitant]
  5. ZZZQUIL NIGHTTIME SLEEP-AID [Suspect]
     Active Substance: DIPHENHYDRAMINE HYDROCHLORIDE
     Indication: SLEEP DISORDER
     Dosage: ?          QUANTITY:30 ML;?
     Route: 048
     Dates: start: 20171030, end: 20171030

REACTIONS (4)
  - Thinking abnormal [None]
  - Cognitive disorder [None]
  - Dissociation [None]
  - Feeling abnormal [None]

NARRATIVE: CASE EVENT DATE: 20171030
